FAERS Safety Report 18852722 (Version 1)
Quarter: 2021Q1

REPORT INFORMATION
  Report Type: Spontaneous
  Country: US (occurrence: US)
  Receive Date: 20210205
  Receipt Date: 20210205
  Transmission Date: 20210420
  Serious: Yes (Other)
  Sender: FDA-Public Use
  Company Number: US-AMGEN-USASP2021015369

PATIENT
  Age: 22 Year
  Sex: Female

DRUGS (1)
  1. IVABRADINE [Suspect]
     Active Substance: IVABRADINE
     Indication: POSTURAL ORTHOSTATIC TACHYCARDIA SYNDROME
     Dosage: 5 MILLIGRAM, BID
     Route: 065

REACTIONS (4)
  - Syncope [Recovering/Resolving]
  - Drug effective for unapproved indication [Unknown]
  - Photopsia [Recovering/Resolving]
  - Off label use [Unknown]
